FAERS Safety Report 10879489 (Version 9)
Quarter: 2016Q1

REPORT INFORMATION
  Report Type: Report from Study
  Country: GB (occurrence: GB)
  Receive Date: 20150302
  Receipt Date: 20160224
  Transmission Date: 20160525
  Serious: Yes (Hospitalization, Other)
  Sender: FDA-Public Use
  Company Number: GB-INCYTE CORPORATION-2014IN003888

PATIENT
  Age: 71 Year
  Sex: Female
  Weight: 79 kg

DRUGS (16)
  1. CARBOMER [Concomitant]
     Active Substance: CARBOMER
     Indication: DRY EYE
     Dosage: 1 DRP, (TDS/QDS)
     Route: 065
     Dates: start: 20110820
  2. LACTULOSE. [Concomitant]
     Active Substance: LACTULOSE
     Dosage: 10/20 ML BD PRN
     Route: 065
     Dates: start: 20071127
  3. PROPRANOLOL [Concomitant]
     Active Substance: PROPRANOLOL\PROPRANOLOL HYDROCHLORIDE
     Indication: VARICES OESOPHAGEAL
     Dosage: 40 MG, TDS
     Route: 048
     Dates: start: 20110601
  4. JAKAFI [Suspect]
     Active Substance: RUXOLITINIB
     Dosage: UNK
     Route: 048
     Dates: start: 20141226, end: 20141228
  5. JAKAFI [Suspect]
     Active Substance: RUXOLITINIB
     Dosage: 10 MG, BID
     Route: 048
     Dates: start: 20150211
  6. JAKAFI [Suspect]
     Active Substance: RUXOLITINIB
     Indication: MYELOFIBROSIS
     Dosage: UNK
     Route: 048
     Dates: start: 20120313
  7. JAKAFI [Suspect]
     Active Substance: RUXOLITINIB
     Dosage: 10 MG, BID
     Route: 048
     Dates: start: 20120726
  8. CHOLECALCIFEROL [Concomitant]
     Active Substance: CHOLECALCIFEROL
     Indication: MYELOFIBROSIS
     Dosage: 1.25 G, BID
     Route: 048
     Dates: start: 20120723
  9. LACTULOSE. [Concomitant]
     Active Substance: LACTULOSE
     Dosage: 10/20 ML BD PRN
     Route: 065
     Dates: start: 20071127
  10. JAKAFI [Suspect]
     Active Substance: RUXOLITINIB
     Dosage: UNK
     Route: 048
     Dates: start: 20141223
  11. LACTULOSE. [Concomitant]
     Active Substance: LACTULOSE
     Indication: PELVIC PAIN
     Dosage: 10/20 ML BD PRN
     Route: 065
     Dates: start: 20071127
  12. OMEPRAZOLE. [Concomitant]
     Active Substance: OMEPRAZOLE
     Indication: VARICES OESOPHAGEAL
     Dosage: 20 MG, QD
     Route: 048
     Dates: start: 20110601
  13. COCODAMOL [Concomitant]
     Active Substance: ACETAMINOPHEN\CODEINE PHOSPHATE
     Indication: MYELOFIBROSIS
     Dosage: QD
     Route: 048
     Dates: start: 20080225, end: 20141223
  14. JAKAFI [Suspect]
     Active Substance: RUXOLITINIB
     Dosage: UNK
     Route: 048
     Dates: start: 20150215
  15. ACIFOL//FOLIC ACID [Concomitant]
     Active Substance: FOLIC ACID
     Indication: PLASMA CELL MYELOMA
     Dosage: 5 MG, BID
     Route: 048
     Dates: start: 20111026
  16. LACTULOSE. [Concomitant]
     Active Substance: LACTULOSE
     Dosage: 10/20 ML BD PRN
     Route: 065
     Dates: start: 20071127

REACTIONS (10)
  - Neutropenic sepsis [Recovered/Resolved]
  - Anaemia [Recovering/Resolving]
  - Petechiae [Recovered/Resolved]
  - Urosepsis [Unknown]
  - Platelet count decreased [Unknown]
  - Urinary tract infection [Recovered/Resolved]
  - Epistaxis [Recovering/Resolving]
  - Upper respiratory tract infection [Recovered/Resolved]
  - Urinary tract infection [Recovered/Resolved]
  - Contusion [Recovered/Resolved]

NARRATIVE: CASE EVENT DATE: 20140910
